FAERS Safety Report 22535415 (Version 1)
Quarter: 2023Q2

REPORT INFORMATION
  Report Type: Spontaneous
  Country: US (occurrence: US)
  Receive Date: 20230608
  Receipt Date: 20230608
  Transmission Date: 20230722
  Serious: No
  Sender: FDA-Public Use
  Company Number: US-ABBVIE-5277773

PATIENT

DRUGS (3)
  1. LUPRON [Suspect]
     Active Substance: LEUPROLIDE ACETATE
     Indication: Product used for unknown indication
     Dosage: 3-MONTH 22.5MG
  2. LUPRON [Suspect]
     Active Substance: LEUPROLIDE ACETATE
     Dosage: 1-MONTH 7.5MG
  3. LUPRON [Suspect]
     Active Substance: LEUPROLIDE ACETATE
     Dosage: 3-MONTH 11.25MG
     Route: 058

REACTIONS (2)
  - Adverse drug reaction [Unknown]
  - Drug ineffective [Unknown]
